FAERS Safety Report 25627202 (Version 1)
Quarter: 2025Q3

REPORT INFORMATION
  Report Type: Spontaneous
  Country: EU (occurrence: EU)
  Receive Date: 20250731
  Receipt Date: 20250731
  Transmission Date: 20251021
  Serious: Yes (Other)
  Sender: TEVA
  Company Number: None

PATIENT
  Age: 68 Year
  Sex: Female
  Weight: 70 kg

DRUGS (1)
  1. SULFAMETHOXAZOLE\TRIMETHOPRIM [Suspect]
     Active Substance: SULFAMETHOXAZOLE\TRIMETHOPRIM
     Indication: Cystitis
     Dosage: 1 TABLET EVERY 12 HOURS, COTRIMOXAZOL RATIOPHARM
     Route: 048
     Dates: start: 20250527, end: 20250602

REACTIONS (2)
  - Perioral dermatitis [Recovered/Resolved with Sequelae]
  - Blister [Recovered/Resolved with Sequelae]

NARRATIVE: CASE EVENT DATE: 20250527
